FAERS Safety Report 24128406 (Version 1)
Quarter: 2024Q3

REPORT INFORMATION
  Report Type: Spontaneous
  Country: US (occurrence: None)
  Receive Date: 20240722
  Receipt Date: 20240722
  Transmission Date: 20241016
  Serious: Yes (Other)
  Sender: Public
  Company Number: None

PATIENT
  Age: 54 Year
  Sex: Female

DRUGS (1)
  1. NASACORT ALLERGY 24HR [Suspect]
     Active Substance: TRIAMCINOLONE ACETONIDE
     Indication: Multiple allergies
     Dosage: OTHER QUANTITY : 1 SPRAY(S);?FREQUENCY : DAILY;?OTHER ROUTE : SPRAY INTO NOSE;?
     Route: 050
     Dates: start: 20230227, end: 20231001

REACTIONS (2)
  - Nasal septum perforation [None]
  - Thermal burn [None]

NARRATIVE: CASE EVENT DATE: 20231001
